APPROVED DRUG PRODUCT: DORZOLAMIDE HYDROCHLORIDE
Active Ingredient: DORZOLAMIDE HYDROCHLORIDE
Strength: EQ 2% BASE
Dosage Form/Route: SOLUTION/DROPS;OPHTHALMIC
Application: A078748 | Product #001 | TE Code: AT
Applicant: SANDOZ INC
Approved: Nov 6, 2008 | RLD: No | RS: No | Type: RX